FAERS Safety Report 4560646-7 (Version None)
Quarter: 2005Q1

REPORT INFORMATION
  Report Type: 
  Country: None (occurrence: None)
  Receive Date: 20050121
  Receipt Date: 20050113
  Transmission Date: 20050727
  Serious: Yes (Hospitalization)
  Sender: FDA-Public Use
  Company Number: H-CH2004-07446

PATIENT
  Age: 63 Year
  Sex: Male
  Weight: 73.8 kg

DRUGS (6)
  1. BOSENTAN (BOSENTAN LPHS TABLET 125 MG) [Suspect]
     Indication: PULMONARY HYPERTENSION
     Dosage: SEE IMAGE
     Route: 048
     Dates: start: 20040426, end: 20040527
  2. BOSENTAN (BOSENTAN LPHS TABLET 125 MG) [Suspect]
     Indication: PULMONARY HYPERTENSION
     Dosage: SEE IMAGE
     Route: 048
     Dates: start: 20040528, end: 20040723
  3. PREDNISOLONE [Concomitant]
  4. OMEPRAZOLE [Concomitant]
  5. COLCHICINA ^LIRCA^ (COLCHICINE) [Concomitant]
  6. AZATHIOPRINE [Suspect]
     Indication: CONNECTIVE TISSUE DISORDER
     Dosage: 100 MG, QD,ORAL
     Dates: start: 20040101, end: 20040701

REACTIONS (4)
  - ASTHENIA [None]
  - NAUSEA [None]
  - VOMITING [None]
  - WEIGHT DECREASED [None]
